FAERS Safety Report 20523774 (Version 1)
Quarter: 2022Q1

REPORT INFORMATION
  Report Type: Spontaneous
  Country: US (occurrence: US)
  Receive Date: 20220228
  Receipt Date: 20220228
  Transmission Date: 20220423
  Serious: No
  Sender: FDA-Public Use
  Company Number: US-IGSA-BIG0016561

PATIENT
  Age: 64 Year
  Sex: Female
  Weight: 58.2 kg

DRUGS (16)
  1. PROLASTIN-C LIQUID [Suspect]
     Active Substance: .ALPHA.1-PROTEINASE INHIBITOR HUMAN
     Indication: Alpha-1 antitrypsin deficiency
     Dosage: 3180 MILLIGRAM, Q.WK.
     Route: 042
     Dates: start: 20210813
  2. PROLASTIN-C LIQUID [Suspect]
     Active Substance: .ALPHA.1-PROTEINASE INHIBITOR HUMAN
     Dosage: 3180 MILLIGRAM, Q.WK.
     Route: 042
     Dates: start: 20210820, end: 20210820
  3. PROLASTIN-C LIQUID [Suspect]
     Active Substance: .ALPHA.1-PROTEINASE INHIBITOR HUMAN
     Dosage: 3180 MILLIGRAM, Q.WK.
     Route: 042
     Dates: start: 20210827, end: 20210827
  4. PROLASTIN-C LIQUID [Suspect]
     Active Substance: .ALPHA.1-PROTEINASE INHIBITOR HUMAN
     Dosage: 3180 MILLIGRAM, Q.WK.
     Route: 042
     Dates: start: 20210903, end: 20210903
  5. PROLASTIN-C LIQUID [Suspect]
     Active Substance: .ALPHA.1-PROTEINASE INHIBITOR HUMAN
     Dosage: 3210 MILLIGRAM, Q.WK.
     Route: 042
     Dates: start: 20210910, end: 20210910
  6. PROLASTIN-C LIQUID [Suspect]
     Active Substance: .ALPHA.1-PROTEINASE INHIBITOR HUMAN
     Dosage: 3210 MILLIGRAM, Q.WK.
     Route: 042
     Dates: start: 20210917, end: 20210917
  7. PROLASTIN-C LIQUID [Suspect]
     Active Substance: .ALPHA.1-PROTEINASE INHIBITOR HUMAN
     Dosage: 3210 MILLIGRAM, Q.WK.
     Route: 042
     Dates: start: 20210924, end: 20210924
  8. PROLASTIN-C LIQUID [Suspect]
     Active Substance: .ALPHA.1-PROTEINASE INHIBITOR HUMAN
     Dosage: 3210 MILLIGRAM, Q.WK.
     Route: 042
     Dates: start: 20211001, end: 20211001
  9. PROLASTIN-C LIQUID [Suspect]
     Active Substance: .ALPHA.1-PROTEINASE INHIBITOR HUMAN
     Dosage: 3213 MILLIGRAM, Q.WK.
     Route: 042
     Dates: start: 20211007, end: 20211007
  10. PROLASTIN-C LIQUID [Suspect]
     Active Substance: .ALPHA.1-PROTEINASE INHIBITOR HUMAN
     Dosage: 3213 MILLIGRAM, Q.WK.
     Route: 042
     Dates: start: 20211022, end: 20211022
  11. PROLASTIN-C LIQUID [Suspect]
     Active Substance: .ALPHA.1-PROTEINASE INHIBITOR HUMAN
     Dosage: 3213 MILLIGRAM, Q.WK.
     Route: 042
     Dates: start: 20211029, end: 20211029
  12. ZYRTEC [Concomitant]
     Active Substance: CETIRIZINE HYDROCHLORIDE
     Dosage: UNK UNK, QD
  13. BUDESONIDE [Concomitant]
     Active Substance: BUDESONIDE
     Dosage: UNK UNK, BID
  14. YUPELRI [Concomitant]
     Active Substance: REVEFENACIN
     Dosage: UNK UNK, QD
  15. PERFOROMIST [Concomitant]
     Active Substance: FORMOTEROL FUMARATE DIHYDRATE
     Dosage: UNK UNK, BID
  16. ALBUTEROL SULFATE [Concomitant]
     Active Substance: ALBUTEROL SULFATE

REACTIONS (4)
  - Dyspnoea [Recovered/Resolved]
  - Fatigue [Recovered/Resolved]
  - Chronic obstructive pulmonary disease [Recovered/Resolved]
  - Product dose omission issue [Recovered/Resolved]

NARRATIVE: CASE EVENT DATE: 20210801
